FAERS Safety Report 9456415 (Version 2)
Quarter: 2013Q3

REPORT INFORMATION
  Report Type: Spontaneous
  Country: DE (occurrence: None)
  Receive Date: 20130809
  Receipt Date: 20130909
  Transmission Date: 20140515
  Serious: Yes (Other)
  Sender: FDA-Public Use
  Company Number: ACO_37717_2013

PATIENT
  Age: 71 Year
  Sex: Female

DRUGS (2)
  1. FAMPYRA [Suspect]
     Indication: PROGRESSIVE MULTIPLE SCLEROSIS
     Route: 048
     Dates: start: 201110, end: 20130725
  2. AZATHIOPRINE (AZATHIOPRINE SODIUM) [Concomitant]

REACTIONS (3)
  - Bladder cancer [None]
  - Gait disturbance [None]
  - Self-medication [None]
